FAERS Safety Report 22122159 (Version 1)
Quarter: 2023Q1

REPORT INFORMATION
  Report Type: Spontaneous
  Country: US (occurrence: US)
  Receive Date: 20230321
  Receipt Date: 20230321
  Transmission Date: 20230417
  Serious: Yes (Death, Other)
  Sender: FDA-Public Use
  Company Number: US-BAXTER-2023BAX014748

PATIENT

DRUGS (4)
  1. LACTATED RINGERS SOLUTION [Suspect]
     Active Substance: CALCIUM CHLORIDE\POTASSIUM CHLORIDE\SODIUM CHLORIDE\SODIUM LACTATE
     Dosage: INFUSION
     Route: 065
  2. SODIUM CHLORIDE [Suspect]
     Active Substance: SODIUM CHLORIDE
     Dosage: 100 ML MINI BAG, INFUSION
     Route: 065
  3. ZOSYN [Suspect]
     Active Substance: PIPERACILLIN SODIUM\TAZOBACTAM SODIUM
     Dosage: 3.375G/50ML PREMIX BAG, INFUSION
     Route: 065
  4. LASIX [Suspect]
     Active Substance: FUROSEMIDE
     Dosage: VIAL Y- SITE, 100 MG/10 ML VIALS, DROPS
     Route: 041

REACTIONS (4)
  - Acute respiratory failure [Fatal]
  - Enteritis infectious [Unknown]
  - Procedural complication [Unknown]
  - Product deposit [Unknown]

NARRATIVE: CASE EVENT DATE: 20230206
